FAERS Safety Report 4474247-2 (Version None)
Quarter: 2004Q4

REPORT INFORMATION
  Report Type: 
  Country: None (occurrence: None)
  Receive Date: 20041008
  Receipt Date: 20040929
  Transmission Date: 20050328
  Serious: Yes (Hospitalization)
  Sender: FDA-Public Use
  Company Number: 2004-09-0190

PATIENT
  Age: 60 Year
  Sex: Male

DRUGS (6)
  1. DIPROSONE [Suspect]
     Indication: ROSACEA
     Dosage: TOP-DERM
     Route: 061
     Dates: start: 20040210, end: 20040310
  2. XYLOCAINE [Suspect]
     Indication: BIOPSY SALIVARY GLAND
     Dosage: SUBCUTANEOUS
     Route: 058
     Dates: start: 20040311, end: 20040311
  3. METRONIDAZOLE [Suspect]
     Indication: PRURITUS
     Dosage: TOP-DERM
     Route: 061
     Dates: start: 20040311, end: 20040311
  4. SERMION [Concomitant]
  5. VASOBRAL [Concomitant]
  6. PREVISCAN [Concomitant]

REACTIONS (4)
  - DISEASE RECURRENCE [None]
  - ECZEMA [None]
  - PRURITUS [None]
  - ROSACEA [None]
